FAERS Safety Report 21077151 (Version 1)
Quarter: 2022Q3

REPORT INFORMATION
  Report Type: Spontaneous
  Country: FR (occurrence: FR)
  Receive Date: 20220713
  Receipt Date: 20220713
  Transmission Date: 20221027
  Serious: Yes (Hospitalization)
  Sender: FDA-Public Use
  Company Number: None

PATIENT
  Age: 68 Year
  Sex: Female
  Weight: 56 kg

DRUGS (4)
  1. POSACONAZOLE [Suspect]
     Active Substance: POSACONAZOLE
     Indication: Infection
     Dosage: UNK
     Route: 048
     Dates: start: 20220303, end: 20220515
  2. VIDAZA [Suspect]
     Active Substance: AZACITIDINE
     Indication: Acute myelomonocytic leukaemia
     Dosage: 75 MILLIGRAM/SQ. METER, D1 TO D7, DOSAGE FORM: 1 DF
     Route: 058
     Dates: start: 20220405, end: 20220503
  3. EVUSHELD [Suspect]
     Active Substance: CILGAVIMAB\TIXAGEVIMAB
     Indication: COVID-19
     Dosage: 1 DOSAGE FORM, CYCLICAL, 1 DF/CURE
     Route: 042
     Dates: start: 20220512, end: 20220512
  4. VENETOCLAX [Suspect]
     Active Substance: VENETOCLAX
     Indication: Acute myelomonocytic leukaemia
     Dosage: 100 MILLIGRAM, D1 TO D14
     Route: 048
     Dates: start: 20220405, end: 20220503

REACTIONS (1)
  - Transient ischaemic attack [Recovering/Resolving]

NARRATIVE: CASE EVENT DATE: 20220515
